FAERS Safety Report 6368887-3 (Version None)
Quarter: 2009Q3

REPORT INFORMATION
  Report Type: 
  Country: None (occurrence: None)
  Receive Date: 20090922
  Receipt Date: 20090909
  Transmission Date: 20100115
  Serious: Yes (Hospitalization)
  Sender: FDA-Public Use
  Company Number: GB-PFIZER INC-2009252462

PATIENT
  Age: 40 Year

DRUGS (2)
  1. CABERGOLINE [Suspect]
     Indication: PROLACTINOMA
     Dosage: 250 UG, TWICE WEEKLY
     Route: 048
     Dates: start: 20010720, end: 20081201
  2. ACETAZOLAMIDE [Concomitant]
     Dosage: 250 MG, 2X/DAY
     Route: 048
     Dates: start: 20000602

REACTIONS (5)
  - AORTIC DILATATION [None]
  - AORTIC VALVE INCOMPETENCE [None]
  - ECHOCARDIOGRAM ABNORMAL [None]
  - MITRAL VALVE INCOMPETENCE [None]
  - MITRAL VALVE SCLEROSIS [None]
